FAERS Safety Report 5729772-0 (Version None)
Quarter: 2008Q2

REPORT INFORMATION
  Report Type: 
  Country: None (occurrence: None)
  Receive Date: 20080501
  Receipt Date: 20080416
  Transmission Date: 20081010
  Serious: Yes (Other)
  Sender: FDA-Public Use
  Company Number: 2008S1006712

PATIENT
  Age: 63 Year
  Sex: Male

DRUGS (7)
  1. OMEPRAZOLE [Suspect]
     Indication: DYSPEPSIA
     Dosage: 20 MG; ; ORAL
     Route: 048
  2. PAROXETINE HCL [Concomitant]
  3. NOBITEN /01339101/ [Concomitant]
  4. ASAFLOW [Concomitant]
  5. ZESTRIL [Concomitant]
  6. CRESTOR [Concomitant]
  7. ZYLORIC /00003301/ [Concomitant]

REACTIONS (3)
  - HEPATIC ENZYME INCREASED [None]
  - INAPPROPRIATE SCHEDULE OF DRUG ADMINISTRATION [None]
  - SKIN ODOUR ABNORMAL [None]
